FAERS Safety Report 4592889-0 (Version None)
Quarter: 2005Q1

REPORT INFORMATION
  Report Type: 
  Country: None (occurrence: None)
  Receive Date: 20050218
  Receipt Date: 20050210
  Transmission Date: 20050727
  Serious: Yes (Death)
  Sender: FDA-Public Use
  Company Number: 2005-02-0601

PATIENT
  Age: 44 Year
  Sex: Male

DRUGS (3)
  1. INTRON A [Suspect]
     Indication: METASTATIC RENAL CELL CARCINOMA
     Dosage: 5 MIU/M2/TIW SUBCUTANEOU
     Route: 058
  2. PROLEUKIN [Suspect]
     Indication: METASTATIC RENAL CELL CARCINOMA
     Dosage: 5 MIU* SUBCUTANEOUS
     Route: 058
  3. ACETAMINOPHEN [Concomitant]

REACTIONS (2)
  - ACUTE RESPIRATORY DISTRESS SYNDROME [None]
  - METASTASES TO LUNG [None]
